FAERS Safety Report 11225441 (Version 2)
Quarter: 2015Q3

REPORT INFORMATION
  Report Type: Report from Study
  Country: CA (occurrence: CA)
  Receive Date: 20150629
  Receipt Date: 20150706
  Transmission Date: 20151125
  Serious: Yes (Hospitalization)
  Sender: FDA-Public Use
  Company Number: CA-JNJFOC-20150619903

PATIENT
  Age: 51 Year
  Sex: Male
  Weight: 59 kg

DRUGS (1)
  1. REMICADE [Suspect]
     Active Substance: INFLIXIMAB
     Indication: COLITIS ULCERATIVE
     Route: 042
     Dates: start: 20150619, end: 20150619

REACTIONS (2)
  - Drug ineffective [Unknown]
  - Surgery [Unknown]

NARRATIVE: CASE EVENT DATE: 20150622
